FAERS Safety Report 21049748 (Version 4)
Quarter: 2022Q3

REPORT INFORMATION
  Report Type: Spontaneous
  Country: CA (occurrence: CA)
  Receive Date: 20220706
  Receipt Date: 20220826
  Transmission Date: 20221027
  Serious: No
  Sender: FDA-Public Use
  Company Number: CA-PFIZER INC-202200680862

PATIENT
  Age: 21 Year
  Sex: Male
  Weight: 51.247 kg

DRUGS (2)
  1. ABRILADA [Suspect]
     Active Substance: ADALIMUMAB-AFZB
     Indication: Hidradenitis
     Dosage: 1 DF,WEEK 0: 160MG SC, WEEK 2: 80MG SC, THEN EVERY WEEK 40MG SC STARTING WEEK 4.
     Route: 058
     Dates: start: 20220422, end: 20220620
  2. LORAZEPAM [Concomitant]
     Active Substance: LORAZEPAM
     Dosage: UNK

REACTIONS (12)
  - Device difficult to use [Unknown]
  - Skin laceration [Unknown]
  - Pain of skin [Unknown]
  - Body mass index decreased [Unknown]
  - Anxiety [Recovered/Resolved]
  - Enuresis [Recovered/Resolved]
  - Injection site pain [Unknown]
  - Weight gain poor [Unknown]
  - Vascular pain [Unknown]
  - Dysstasia [Unknown]
  - Gait disturbance [Unknown]
  - Movement disorder [Unknown]

NARRATIVE: CASE EVENT DATE: 20220101
